FAERS Safety Report 24980012 (Version 1)
Quarter: 2025Q1

REPORT INFORMATION
  Report Type: Report from Study
  Country: US (occurrence: US)
  Receive Date: 20250218
  Receipt Date: 20250218
  Transmission Date: 20250409
  Serious: Yes (Hospitalization)
  Sender: ACCORD
  Company Number: US-SUMITOMO PHARMA SWITZERLAND GMBH-2024SPA002237

PATIENT
  Age: 54 Year
  Sex: Male

DRUGS (5)
  1. DOCETAXEL [Suspect]
     Active Substance: DOCETAXEL
     Indication: Product used for unknown indication
  2. RELUGOLIX [Suspect]
     Active Substance: RELUGOLIX
     Indication: Prostate cancer
     Dosage: 360 MG
     Route: 048
     Dates: start: 20240810, end: 20240810
  3. DAROLUTAMIDE [Concomitant]
     Active Substance: DAROLUTAMIDE
     Indication: Product used for unknown indication
  4. RELUGOLIX [Suspect]
     Active Substance: RELUGOLIX
     Indication: Prostate cancer
     Dosage: 120 MG, QD
     Route: 048
     Dates: start: 20240811
  5. RELUGOLIX [Suspect]
     Active Substance: RELUGOLIX
     Indication: Prostate cancer
     Dosage: 120 MG, BID
     Route: 048

REACTIONS (10)
  - Nephrolithiasis [Unknown]
  - Neuropathy peripheral [Unknown]
  - White blood cell count decreased [Unknown]
  - Sleep disorder [Unknown]
  - Alopecia [Unknown]
  - Rosacea [Unknown]
  - Nausea [Unknown]
  - Haemoglobin decreased [Unknown]
  - Hypertension [Unknown]
  - Inappropriate schedule of product administration [Unknown]
